FAERS Safety Report 23855968 (Version 1)
Quarter: 2024Q2

REPORT INFORMATION
  Report Type: Spontaneous
  Country: JP (occurrence: JP)
  Receive Date: 20240515
  Receipt Date: 20240515
  Transmission Date: 20240716
  Serious: Yes (Hospitalization, Other)
  Sender: FDA-Public Use
  Company Number: JP-SANDOZ-SDZ2024JP046439

PATIENT
  Age: 60 Year
  Sex: Female

DRUGS (4)
  1. PREDONINE [Suspect]
     Active Substance: PREDNISOLONE
     Indication: Facial paralysis
     Dosage: 60 MG
     Route: 065
  2. PREDONINE [Suspect]
     Active Substance: PREDNISOLONE
     Dosage: UNK MG
     Route: 065
  3. VALACYCLOVIR HYDROCHLORIDE [Suspect]
     Active Substance: VALACYCLOVIR HYDROCHLORIDE
     Indication: Facial paralysis
     Dosage: 3 G
     Route: 065
  4. VALACYCLOVIR HYDROCHLORIDE [Suspect]
     Active Substance: VALACYCLOVIR HYDROCHLORIDE
     Dosage: UNK
     Route: 065

REACTIONS (3)
  - Posterior reversible encephalopathy syndrome [Recovering/Resolving]
  - Subarachnoid haemorrhage [Recovering/Resolving]
  - Spinal subarachnoid haemorrhage [Recovering/Resolving]
